FAERS Safety Report 25974780 (Version 1)
Quarter: 2025Q4

REPORT INFORMATION
  Report Type: Spontaneous
  Country: US (occurrence: US)
  Receive Date: 20251029
  Receipt Date: 20251029
  Transmission Date: 20260117
  Serious: Yes (Other)
  Sender: BIOGEN
  Company Number: US-BIOGEN-2087772

PATIENT
  Age: 64 Year
  Sex: Male
  Weight: 99.79 kg

DRUGS (4)
  1. TECFIDERA [Suspect]
     Active Substance: DIMETHYL FUMARATE
     Indication: Multiple sclerosis
     Dosage: PRESCRIBED ABOUT 10-15 YEARS AGO
  2. ZYTIGA [Concomitant]
     Active Substance: ABIRATERONE ACETATE
     Indication: Bone cancer
  3. LYRICA [Concomitant]
     Active Substance: PREGABALIN
     Indication: Pain in extremity
     Dosage: 1 CAPSULE EVERY NIGHT FOR 90 DAYS, PRESCRIBED 90 CAPSULE
  4. LYRICA [Concomitant]
     Active Substance: PREGABALIN
     Dosage: 1 CAPSULE EVERY MORNINGT FOR 90 DAYS, PRESCRIBED 90 CAPSULE

REACTIONS (1)
  - Retinal vein occlusion [Unknown]

NARRATIVE: CASE EVENT DATE: 20191101
